FAERS Safety Report 15210469 (Version 1)
Quarter: 2018Q3

REPORT INFORMATION
  Report Type: Spontaneous
  Country: US (occurrence: US)
  Receive Date: 20180629
  Receipt Date: 20180629
  Transmission Date: 20181010
  Serious: Yes (Disabling)
  Sender: FDA-Public Use
  Company Number: None

PATIENT
  Age: 25 Year
  Sex: Female
  Weight: 61.65 kg

DRUGS (6)
  1. IODINE. [Concomitant]
     Active Substance: IODINE
  2. VITAMIN B12 [Concomitant]
     Active Substance: CYANOCOBALAMIN
  3. MAGNESIUM [Concomitant]
     Active Substance: MAGNESIUM
  4. DAILY MULTIVITAMIN [Concomitant]
     Active Substance: VITAMINS
  5. CIPROFLOXACIN. [Suspect]
     Active Substance: CIPROFLOXACIN
     Indication: URINARY TRACT INFECTION
     Dosage: ?          QUANTITY:1 TABLET(S);?
     Route: 048
     Dates: start: 20180424, end: 20180425
  6. GABA [Concomitant]
     Active Substance: HOMEOPATHICS

REACTIONS (13)
  - Pain [None]
  - Loss of personal independence in daily activities [None]
  - Tendon pain [None]
  - Headache [None]
  - Frustration tolerance decreased [None]
  - Abdominal pain upper [None]
  - Fatigue [None]
  - Nerve injury [None]
  - Gait disturbance [None]
  - Depression [None]
  - Paraesthesia [None]
  - Crying [None]
  - Impaired work ability [None]

NARRATIVE: CASE EVENT DATE: 20180425
